FAERS Safety Report 4542347-4 (Version None)
Quarter: 2004Q4

REPORT INFORMATION
  Report Type: 
  Country: None (occurrence: None)
  Receive Date: 20041227
  Receipt Date: 20041213
  Transmission Date: 20050328
  Serious: Yes (Other)
  Sender: FDA-Public Use
  Company Number: 2004097559

PATIENT
  Sex: Female

DRUGS (6)
  1. CELEBREX [Suspect]
     Indication: OSTEOARTHRITIS
  2. ROFECOXIB [Suspect]
     Indication: ILL-DEFINED DISORDER
  3. ACETAMINOPHEN [Concomitant]
  4. VALDECOXIB [Concomitant]
  5. ACETAMINOPHEN [Concomitant]
  6. VALDECOXIB [Concomitant]

REACTIONS (1)
  - GASTRIC HAEMORRHAGE [None]
